FAERS Safety Report 8366102-2 (Version None)
Quarter: 2012Q2

REPORT INFORMATION
  Report Type: 
  Country: None (occurrence: None)
  Receive Date: 20120516
  Receipt Date: 20120516
  Transmission Date: 20120825
  Serious: Yes (Life-Threatening, Other)
  Sender: FDA-Public Use
  Company Number: None

PATIENT
  Age: 70 Year
  Sex: Female
  Weight: 83.0083 kg

DRUGS (2)
  1. GABAPENTIN [Suspect]
     Indication: PAIN
     Dosage: ONE CAPSULE 3 TIMES/DAY
     Dates: start: 20120416
  2. GABAPENTIN [Suspect]
     Indication: PAIN
     Dosage: ONE CAPSULE 3 TIMES/DAY
     Dates: start: 20111209

REACTIONS (4)
  - TREMOR [None]
  - GAIT DISTURBANCE [None]
  - FEELING ABNORMAL [None]
  - DIZZINESS [None]
